FAERS Safety Report 10427387 (Version 1)
Quarter: 2014Q3

REPORT INFORMATION
  Report Type: Spontaneous
  Country: US (occurrence: None)
  Receive Date: 20140902
  Receipt Date: 20140902
  Transmission Date: 20150326
  Serious: No
  Sender: FDA-Public Use
  Company Number: None

PATIENT
  Age: 25 Year
  Sex: Female
  Weight: 77.11 kg

DRUGS (1)
  1. VIIBRYD [Suspect]
     Active Substance: VILAZODONE HYDROCHLORIDE
     Indication: BIPOLAR DISORDER
     Route: 048
     Dates: start: 20140201, end: 20140819

REACTIONS (15)
  - Crying [None]
  - Malaise [None]
  - Pruritus [None]
  - Respiratory disorder [None]
  - Insomnia [None]
  - Pain [None]
  - Cough [None]
  - Rash [None]
  - Asthenia [None]
  - Sneezing [None]
  - Chills [None]
  - Vision blurred [None]
  - Rhinorrhoea [None]
  - Dizziness [None]
  - Dyspnoea [None]

NARRATIVE: CASE EVENT DATE: 20140820
